FAERS Safety Report 18569617 (Version 1)
Quarter: 2020Q4

REPORT INFORMATION
  Report Type: Spontaneous
  Country: FR (occurrence: FR)
  Receive Date: 20201202
  Receipt Date: 20201202
  Transmission Date: 20210114
  Serious: Yes (Hospitalization, Other)
  Sender: FDA-Public Use
  Company Number: FR-PFIZER INC-2020468625

PATIENT
  Age: 39 Year
  Sex: Male

DRUGS (3)
  1. PARACETAMOL [Suspect]
     Active Substance: ACETAMINOPHEN
     Indication: SUICIDE ATTEMPT
     Dosage: 50 G, SINGLE
     Route: 048
     Dates: start: 20201102, end: 20201102
  2. VENLAFAXINE HCL [Suspect]
     Active Substance: VENLAFAXINE HYDROCHLORIDE
     Indication: SUICIDE ATTEMPT
     Dosage: 20 DF, SINGLE
     Route: 048
     Dates: start: 20201102, end: 20201102
  3. NAPROXEN. [Suspect]
     Active Substance: NAPROXEN
     Indication: SUICIDE ATTEMPT
     Dosage: 10 DF, SINGLE
     Route: 048
     Dates: start: 20201102, end: 20201102

REACTIONS (4)
  - Intentional overdose [Recovered/Resolved]
  - Thrombocytopenia [Not Recovered/Not Resolved]
  - Hepatocellular injury [Recovering/Resolving]
  - Hypertransaminasaemia [Recovering/Resolving]

NARRATIVE: CASE EVENT DATE: 20201103
